FAERS Safety Report 5729652-0 (Version None)
Quarter: 2008Q2

REPORT INFORMATION
  Report Type: 
  Country: None (occurrence: None)
  Receive Date: 20080501
  Receipt Date: 20080418
  Transmission Date: 20081010
  Serious: Yes (Other)
  Sender: FDA-Public Use
  Company Number: 2008000922

PATIENT
  Age: 71 Year
  Sex: Male

DRUGS (1)
  1. TARCEVA [Suspect]
     Indication: NON-SMALL CELL LUNG CANCER
     Dosage: (150 MG, QD), ORAL
     Route: 048
     Dates: start: 20071030

REACTIONS (17)
  - ACNE [None]
  - ALOPECIA [None]
  - ANOREXIA [None]
  - DIARRHOEA [None]
  - DRY SKIN [None]
  - DYSPHAGIA [None]
  - ERUCTATION [None]
  - EYE IRRITATION [None]
  - FOLLICULITIS [None]
  - GOUT [None]
  - MENTAL DISORDER [None]
  - MUCOSAL INFLAMMATION [None]
  - PRURITUS [None]
  - RASH [None]
  - RHINORRHOEA [None]
  - SKIN FISSURES [None]
  - SUICIDAL IDEATION [None]
